FAERS Safety Report 9372285 (Version 1)
Quarter: 2013Q2

REPORT INFORMATION
  Report Type: Spontaneous
  Country: US (occurrence: US)
  Receive Date: 20130627
  Receipt Date: 20130627
  Transmission Date: 20140414
  Serious: No
  Sender: FDA-Public Use
  Company Number: US-MYLANLABS-2012S1019732

PATIENT
  Age: 41 Year
  Sex: Male
  Weight: 63.5 kg

DRUGS (4)
  1. CLOZAPINE TABLETS [Suspect]
     Indication: SCHIZOAFFECTIVE DISORDER BIPOLAR TYPE
     Route: 048
     Dates: start: 20090928
  2. CALCIUM PLUS VITAMIN D [Concomitant]
     Dates: start: 20081217
  3. LOVASTATIN [Concomitant]
     Route: 048
     Dates: start: 20110927
  4. NIACIN [Concomitant]
     Route: 048
     Dates: start: 20120517

REACTIONS (1)
  - Adverse event [Not Recovered/Not Resolved]
